FAERS Safety Report 18501375 (Version 2)
Quarter: 2020Q4

REPORT INFORMATION
  Report Type: Spontaneous
  Country: RU (occurrence: RU)
  Receive Date: 20201113
  Receipt Date: 20201119
  Transmission Date: 20210114
  Serious: Yes (Death)
  Sender: FDA-Public Use
  Company Number: RU-BAYER-2020-246592

PATIENT
  Age: 29 Month
  Weight: 15 kg

DRUGS (2)
  1. ULTRAVIST [Suspect]
     Active Substance: IOPROMIDE
     Indication: CEREBRAL VENOUS SINUS THROMBOSIS
  2. ULTRAVIST [Suspect]
     Active Substance: IOPROMIDE
     Indication: COMPUTERISED TOMOGRAM
     Dosage: 30 ML, ONCE
     Route: 042
     Dates: start: 20201107, end: 20201107

REACTIONS (1)
  - Death [Fatal]

NARRATIVE: CASE EVENT DATE: 20201109
